FAERS Safety Report 23186012 (Version 1)
Quarter: 2023Q4

REPORT INFORMATION
  Report Type: Spontaneous
  Country: US (occurrence: US)
  Receive Date: 20231115
  Receipt Date: 20231115
  Transmission Date: 20240109
  Serious: Yes (Life-Threatening, Hospitalization)
  Sender: FDA-Public Use
  Company Number: US-PFIZER INC-PV202300184750

PATIENT

DRUGS (4)
  1. FENTANYL CITRATE [Suspect]
     Active Substance: FENTANYL CITRATE
     Indication: Analgesic therapy
     Dosage: 25 UG (SUBARACHNOID)
     Route: 064
  2. MEPERIDINE [Concomitant]
     Active Substance: MEPERIDINE
     Indication: Analgesic therapy
     Dosage: 25 MG
     Route: 064
  3. PROMETHAZINE [Concomitant]
     Active Substance: PROMETHAZINE HYDROCHLORIDE
     Indication: Analgesic therapy
     Dosage: 25 UG
     Route: 064
  4. TERBUTALINE [Concomitant]
     Active Substance: TERBUTALINE
     Dosage: 0.25 MG
     Route: 064

REACTIONS (2)
  - Foetal exposure during delivery [Unknown]
  - Bradycardia foetal [Unknown]
